FAERS Safety Report 22918478 (Version 2)
Quarter: 2024Q1

REPORT INFORMATION
  Report Type: Report from Study
  Country: FR (occurrence: FR)
  Receive Date: 20230907
  Receipt Date: 20240329
  Transmission Date: 20240409
  Serious: Yes (Other)
  Sender: FDA-Public Use
  Company Number: FR-FreseniusKabi-FK202313541

PATIENT
  Sex: Female
  Weight: 51 kg

DRUGS (2)
  1. HUMIRA [Suspect]
     Active Substance: ADALIMUMAB
     Indication: Crohn^s disease
     Route: 058
  2. IDACIO [Suspect]
     Active Substance: ADALIMUMAB-AACF
     Indication: Crohn^s disease
     Route: 058
     Dates: end: 20230824

REACTIONS (2)
  - Injection site pain [Recovered/Resolved with Sequelae]
  - Drug ineffective [Unknown]

NARRATIVE: CASE EVENT DATE: 20230824
